FAERS Safety Report 12154070 (Version 1)
Quarter: 2016Q1

REPORT INFORMATION
  Report Type: Report from Study
  Country: DE (occurrence: DE)
  Receive Date: 20160307
  Receipt Date: 20160307
  Transmission Date: 20160526
  Serious: Yes (Other)
  Sender: FDA-Public Use
  Company Number: DE-ROCHE-1716245

PATIENT
  Sex: Female

DRUGS (3)
  1. VINORELBINE [Suspect]
     Active Substance: VINORELBINE\VINORELBINE TARTRATE
     Indication: BREAST CANCER METASTATIC
     Route: 042
  2. TRASTUZUMAB [Suspect]
     Active Substance: TRASTUZUMAB
     Indication: BREAST CANCER METASTATIC
     Dosage: INITAIL LOADING DOSE
     Route: 042
  3. TRASTUZUMAB [Suspect]
     Active Substance: TRASTUZUMAB
     Route: 042

REACTIONS (35)
  - Neutropenia [Unknown]
  - Hypokalaemia [Unknown]
  - Cardiac failure congestive [Unknown]
  - Neutrophil count decreased [Unknown]
  - Urinary tract infection [Unknown]
  - Cardiac failure [Unknown]
  - Pharyngeal inflammation [Unknown]
  - Bone marrow toxicity [Unknown]
  - Febrile neutropenia [Unknown]
  - Abdominal pain [Unknown]
  - Dyspnoea [Unknown]
  - Ejection fraction decreased [Unknown]
  - Cardiac infection [Unknown]
  - Anaemia [Unknown]
  - Hypoaesthesia [Unknown]
  - Sepsis [Unknown]
  - Abscess intestinal [Unknown]
  - Leukopenia [Unknown]
  - Fatigue [Unknown]
  - Hypertension [Unknown]
  - Malaise [Unknown]
  - Back pain [Unknown]
  - Extravasation [Unknown]
  - White blood cell count decreased [Unknown]
  - Alanine aminotransferase increased [Unknown]
  - Pyrexia [Unknown]
  - Mucosal inflammation [Unknown]
  - Asthenia [Unknown]
  - Mouth ulceration [Unknown]
  - Infection [Unknown]
  - Respiratory failure [Unknown]
  - Ileus [Unknown]
  - Pulmonary embolism [Unknown]
  - Haemoglobin decreased [Unknown]
  - Bone marrow failure [Unknown]
